FAERS Safety Report 6622752-2 (Version None)
Quarter: 2010Q1

REPORT INFORMATION
  Report Type: 
  Country: None (occurrence: None)
  Receive Date: 20100304
  Receipt Date: 20100223
  Transmission Date: 20100710
  Serious: Yes (Hospitalization)
  Sender: FDA-Public Use
  Company Number: 007783

PATIENT
  Sex: Female
  Weight: 92 kg

DRUGS (10)
  1. CERTOLIZUMAB PEGOL (CERTOLIZUMAB PEGOL) [Suspect]
     Indication: RHEUMATOID ARTHRITIS
     Dosage: SUBUCTANEOUS, 1 ML 1X/2 WEEKS SUBCUTANEOUS
     Route: 058
     Dates: start: 20080430, end: 20100218
  2. CERTOLIZUMAB PEGOL (CERTOLIZUMAB PEGOL) [Suspect]
     Indication: RHEUMATOID ARTHRITIS
     Dosage: SUBUCTANEOUS, 1 ML 1X/2 WEEKS SUBCUTANEOUS
     Route: 058
     Dates: start: 20051020
  3. METHOTREXATE [Concomitant]
  4. FOLIC ACID [Concomitant]
  5. METHYLPREDNISOLONE [Concomitant]
  6. IBRUPROFEN [Concomitant]
  7. DOXYCYCLINE [Concomitant]
  8. ESPUMISAN [Concomitant]
  9. CELIPROLOL [Concomitant]
  10. NUROFEN [Concomitant]

REACTIONS (4)
  - CHOLANGITIS [None]
  - OEDEMA PERIPHERAL [None]
  - RASH ERYTHEMATOUS [None]
  - RASH MACULAR [None]
